FAERS Safety Report 9797595 (Version 3)
Quarter: 2014Q2

REPORT INFORMATION
  Report Type: Report from Study
  Country: US (occurrence: US)
  Receive Date: 20140106
  Receipt Date: 20140617
  Transmission Date: 20141212
  Serious: Yes (Hospitalization, Other)
  Sender: FDA-Public Use
  Company Number: US-ROCHE-1327745

PATIENT
  Age: 72 Year
  Sex: Female
  Weight: 114.41 kg

DRUGS (11)
  1. ACTEMRA [Suspect]
     Indication: RHEUMATOID ARTHRITIS
     Route: 042
     Dates: start: 201203
  2. ACTEMRA [Suspect]
     Route: 042
     Dates: start: 20131217
  3. PREDNISONE [Concomitant]
     Route: 048
  4. OMEPRAZOLE [Concomitant]
     Route: 065
  5. LASIX [Concomitant]
     Route: 065
  6. LASIX [Concomitant]
     Route: 065
  7. GLYBURIDE [Concomitant]
     Route: 065
  8. ATENOLOL [Concomitant]
     Indication: HYPERTENSION
     Route: 065
  9. LOSARTAN [Concomitant]
     Indication: HYPERTENSION
     Dosage: 100MQ/25MQ
     Route: 065
  10. BENADRYL (UNITED STATES) [Concomitant]
  11. TYLENOL [Concomitant]

REACTIONS (8)
  - Haemorrhage [Recovered/Resolved]
  - Abasia [Recovered/Resolved]
  - Dyspnoea [Recovered/Resolved]
  - Hepatic enzyme increased [Unknown]
  - Full blood count decreased [Unknown]
  - Hearing impaired [Unknown]
  - Platelet count decreased [Unknown]
  - Herpes zoster [Recovered/Resolved]
